FAERS Safety Report 10681021 (Version 4)
Quarter: 2015Q3

REPORT INFORMATION
  Report Type: Report from Study
  Country: US (occurrence: US)
  Receive Date: 20141229
  Receipt Date: 20150901
  Transmission Date: 20151125
  Serious: Yes (Other)
  Sender: FDA-Public Use
  Company Number: US-SA-2014SA176909

PATIENT
  Age: 57 Year
  Sex: Female
  Weight: 54.43 kg

DRUGS (2)
  1. AUBAGIO [Suspect]
     Active Substance: TERIFLUNOMIDE
     Indication: MULTIPLE SCLEROSIS
     Dosage: STRENGTH-7 MG
     Route: 048
     Dates: start: 20131122, end: 20150108
  2. AUBAGIO [Suspect]
     Active Substance: TERIFLUNOMIDE
     Indication: MULTIPLE SCLEROSIS
     Dosage: STRENGTH-14 MG
     Route: 048
     Dates: start: 20150109

REACTIONS (3)
  - Multiple sclerosis [Not Recovered/Not Resolved]
  - Paraplegia [Not Recovered/Not Resolved]
  - Wheelchair user [Not Recovered/Not Resolved]
